FAERS Safety Report 6236586-4 (Version None)
Quarter: 2009Q2

REPORT INFORMATION
  Report Type: 
  Country: None (occurrence: None)
  Receive Date: 20090617
  Receipt Date: 20080505
  Transmission Date: 20091009
  Serious: No
  Sender: FDA-Public Use
  Company Number: 275031

PATIENT
  Age: 62 Year
  Sex: Male

DRUGS (7)
  1. LEVEMIR [Suspect]
     Indication: INSULIN-REQUIRING TYPE 2 DIABETES MELLITUS
     Dosage: 100 LU, QD (PM), SUBCUTANEOUS
     Route: 058
     Dates: start: 20070301
  2. SYNTHROID [Concomitant]
  3. SYMLIN [Concomitant]
  4. INSULIN LISPRO [Concomitant]
  5. FISH OIL [Concomitant]
  6. ASPIRIN [Concomitant]
  7. PANTOPRAZOLE SODIUM [Concomitant]

REACTIONS (1)
  - BLOOD GLUCOSE INCREASED [None]
